FAERS Safety Report 8921960 (Version 1)
Quarter: 2012Q4

REPORT INFORMATION
  Report Type: Spontaneous
  Country: US (occurrence: None)
  Receive Date: 20121119
  Receipt Date: 20121119
  Transmission Date: 20130627
  Serious: Yes (Hospitalization, Other)
  Sender: FDA-Public Use
  Company Number: None

PATIENT
  Age: 52 Year
  Sex: Female

DRUGS (1)
  1. WELLBUTRIN SR [Suspect]
     Dosage: 150 mg bid po
     Route: 048

REACTIONS (4)
  - Product quality issue [None]
  - Product lot number issue [None]
  - Adverse drug reaction [None]
  - Product contamination [None]
